FAERS Safety Report 4751718-2 (Version None)
Quarter: 2005Q3

REPORT INFORMATION
  Report Type: 
  Country: None (occurrence: None)
  Receive Date: 20050824
  Receipt Date: 20050726
  Transmission Date: 20060218
  Serious: Yes (Death)
  Sender: FDA-Public Use
  Company Number: US-BRISTOL-MYERS SQUIBB COMPANY-13050943

PATIENT
  Age: 69 Year
  Sex: Female

DRUGS (3)
  1. MEGACE [Suspect]
     Indication: INCREASED APPETITE
     Route: 048
     Dates: start: 20050125, end: 20050715
  2. EFFEXOR [Concomitant]
  3. MAGNESIUM OXIDE [Concomitant]

REACTIONS (1)
  - NEOPLASM MALIGNANT [None]
